FAERS Safety Report 23575839 (Version 1)
Quarter: 2024Q1

REPORT INFORMATION
  Report Type: Spontaneous
  Country: US (occurrence: None)
  Receive Date: 20240227
  Receipt Date: 20240227
  Transmission Date: 20240410
  Serious: No
  Sender: FDA-Public Use
  Company Number: None

PATIENT
  Age: 72 Year
  Sex: Male
  Weight: 113.4 kg

DRUGS (9)
  1. TIZANIDINE HYDROCHLORIDE [Suspect]
     Active Substance: TIZANIDINE HYDROCHLORIDE
     Indication: Vertebroplasty
     Dosage: 20 PILLS T 980 - ONLY TOOK ONE PILL MOUTH
     Route: 048
     Dates: start: 20240123, end: 20240123
  2. METOPROLOL [Concomitant]
     Active Substance: METOPROLOL
  3. Olmesartan-Benicar [Concomitant]
  4. TRAMADOL [Concomitant]
     Active Substance: TRAMADOL\TRAMADOL HYDROCHLORIDE
  5. Vit D-3 [Concomitant]
  6. VIT-C [Concomitant]
  7. FOLIC ACID [Concomitant]
     Active Substance: FOLIC ACID
  8. PROBIOTICS NOS [Concomitant]
     Active Substance: PROBIOTICS NOS
  9. ASPIRIN [Concomitant]
     Active Substance: ASPIRIN

REACTIONS (3)
  - Tinnitus [None]
  - Fatigue [None]
  - Hallucination [None]

NARRATIVE: CASE EVENT DATE: 20240123
